FAERS Safety Report 9669120 (Version 1)
Quarter: 2013Q4

REPORT INFORMATION
  Report Type: Report from Study
  Country: FR (occurrence: FR)
  Receive Date: 20131105
  Receipt Date: 20131105
  Transmission Date: 20140711
  Serious: Yes (Hospitalization)
  Sender: FDA-Public Use
  Company Number: FR-ASTELLAS-2013EU009493

PATIENT
  Age: 57 Year
  Sex: Female

DRUGS (6)
  1. ADVAGRAF [Suspect]
     Indication: PROPHYLAXIS AGAINST TRANSPLANT REJECTION
     Dosage: 5 MG, UID/QD
     Route: 048
     Dates: start: 20130806
  2. ADVAGRAF [Suspect]
     Dosage: 10 MG, UID/QD
     Route: 048
     Dates: start: 20130820, end: 20130826
  3. ADVAGRAF [Suspect]
     Dosage: 5 MG, UID/QD
     Route: 048
     Dates: start: 20130827
  4. CELLCEPT                           /01275102/ [Concomitant]
     Indication: IMMUNOSUPPRESSION
     Dosage: UNK
     Route: 065
     Dates: start: 20130416
  5. BACTRIM [Concomitant]
     Indication: INFECTION PROPHYLAXIS
     Dosage: UNK
     Route: 065
     Dates: start: 20130420
  6. MICARDIS [Concomitant]
     Indication: HYPERTENSION
     Dosage: UNK
     Route: 065
     Dates: start: 20130516

REACTIONS (2)
  - Renal failure acute [Recovered/Resolved]
  - Renal artery stenosis [Recovered/Resolved]
